FAERS Safety Report 7047201-4 (Version None)
Quarter: 2010Q4

REPORT INFORMATION
  Report Type: 
  Country: None (occurrence: None)
  Receive Date: 20101015
  Receipt Date: 20101007
  Transmission Date: 20110411
  Serious: Yes (Hospitalization)
  Sender: FDA-Public Use
  Company Number: FR-ROCHE-632870

PATIENT
  Sex: Male

DRUGS (6)
  1. CELLCEPT [Suspect]
     Route: 048
     Dates: start: 20090503, end: 20090505
  2. IMUREL [Concomitant]
     Dates: end: 20060701
  3. IMUREL [Concomitant]
  4. FUROSEMIDE [Concomitant]
  5. RAMIPRIL [Concomitant]
  6. EZETIMIBE/SIMVASTATIN [Concomitant]

REACTIONS (1)
  - POLYARTHRITIS [None]
